FAERS Safety Report 7392153-0 (Version None)
Quarter: 2011Q2

REPORT INFORMATION
  Report Type: 
  Country: None (occurrence: None)
  Receive Date: 20110404
  Receipt Date: 20110329
  Transmission Date: 20111010
  Serious: Yes (Other)
  Sender: FDA-Public Use
  Company Number: A0920429A

PATIENT
  Age: 55 Year
  Sex: Male

DRUGS (13)
  1. MAGNESIUM [Concomitant]
  2. AMLODIPINE [Concomitant]
  3. NEXIUM [Concomitant]
  4. LYRICA [Concomitant]
  5. LEVOTHYROXINE [Concomitant]
  6. FEXOFENADINE [Concomitant]
  7. XYZAL [Concomitant]
  8. MULTI-VITAMIN [Concomitant]
  9. ALLERGY INJECTIONS [Concomitant]
  10. LOVAZA [Suspect]
     Indication: BLOOD TRIGLYCERIDES INCREASED
     Dosage: 2CAP TWICE PER DAY
     Route: 048
     Dates: start: 20100101, end: 20100601
  11. POTASSIUM [Concomitant]
  12. ACYCLOVIR [Concomitant]
  13. ASPIRIN [Concomitant]

REACTIONS (4)
  - DYSPNOEA [None]
  - PRODUCTIVE COUGH [None]
  - DRUG INTOLERANCE [None]
  - ASTHMA [None]
